FAERS Safety Report 18583481 (Version 1)
Quarter: 2020Q4

REPORT INFORMATION
  Report Type: Other
  Country: AR (occurrence: AR)
  Receive Date: 20201207
  Receipt Date: 20201207
  Transmission Date: 20210114
  Serious: Yes (Hospitalization)
  Sender: FDA-Public Use
  Company Number: AR-ROCHE-2726753

PATIENT
  Age: 15 Year
  Sex: Male

DRUGS (2)
  1. XOLAIR [Suspect]
     Active Substance: OMALIZUMAB
     Indication: ASTHMA
     Dosage: 1200 MG, QMO
     Route: 058
     Dates: start: 20041218
  2. XOLAIR [Suspect]
     Active Substance: OMALIZUMAB
     Dosage: 8 OF 150 MG, MONTHLY
     Route: 065
     Dates: start: 20181218, end: 20190903

REACTIONS (1)
  - Asthmatic crisis [Recovered/Resolved]

NARRATIVE: CASE EVENT DATE: 20200701
